FAERS Safety Report 14474281 (Version 1)
Quarter: 2018Q1

REPORT INFORMATION
  Report Type: Spontaneous
  Country: US (occurrence: US)
  Receive Date: 20180131
  Receipt Date: 20180131
  Transmission Date: 20180509
  Serious: Yes (Life-Threatening, Hospitalization)
  Sender: FDA-Public Use
  Company Number: None

PATIENT
  Age: 68 Year
  Sex: Male
  Weight: 75 kg

DRUGS (1)
  1. PHENYTOIN. [Suspect]
     Active Substance: PHENYTOIN
     Indication: SEIZURE
     Dates: start: 20170901, end: 20171031

REACTIONS (8)
  - Drug level increased [None]
  - Fall [None]
  - Mental status changes [None]
  - Dizziness [None]
  - Influenza [None]
  - Confusional state [None]
  - Therapy cessation [None]
  - Toxicity to various agents [None]

NARRATIVE: CASE EVENT DATE: 20171031
